FAERS Safety Report 5113628-0 (Version None)
Quarter: 2006Q3

REPORT INFORMATION
  Report Type: 
  Country: None (occurrence: None)
  Receive Date: 20060920
  Receipt Date: 20060907
  Transmission Date: 20061208
  Serious: Yes (Hospitalization, Other)
  Sender: FDA-Public Use
  Company Number: 2006093295

PATIENT
  Age: 28 Year
  Sex: Male
  Weight: 65 kg

DRUGS (1)
  1. ZITHROMAX [Suspect]
     Indication: URETHRITIS TRICHOMONAL
     Dosage: 1000 MG (1000 MG, ONCE), ORAL
     Route: 048
     Dates: start: 20060726, end: 20060726

REACTIONS (10)
  - ABDOMINAL PAIN UPPER [None]
  - ALANINE AMINOTRANSFERASE INCREASED [None]
  - ASPARTATE AMINOTRANSFERASE INCREASED [None]
  - DYSPNOEA [None]
  - FOOD POISONING [None]
  - GAMMA-GLUTAMYLTRANSFERASE INCREASED [None]
  - LIVER DISORDER [None]
  - ORAL MUCOSAL ERUPTION [None]
  - PYREXIA [None]
  - RASH [None]
